FAERS Safety Report 20576137 (Version 4)
Quarter: 2022Q2

REPORT INFORMATION
  Report Type: Spontaneous
  Country: US (occurrence: US)
  Receive Date: 20220310
  Receipt Date: 20220606
  Transmission Date: 20220721
  Serious: Yes (Disabling, Other)
  Sender: FDA-Public Use
  Company Number: US-HORIZON THERAPEUTICS-HZN-2022-001712

PATIENT

DRUGS (1)
  1. TEPEZZA [Suspect]
     Active Substance: TEPROTUMUMAB-TRBW
     Indication: Endocrine ophthalmopathy
     Dosage: IV, SHE RECEIVED ALL 8 INFUSIONS IN 2020
     Route: 042
     Dates: start: 2020

REACTIONS (6)
  - Wheelchair user [Recovered/Resolved]
  - Metabolic surgery [Unknown]
  - Alopecia [Unknown]
  - Teeth brittle [Unknown]
  - Weight decreased [Unknown]
  - Condition aggravated [Unknown]
